FAERS Safety Report 10062006 (Version 1)
Quarter: 2014Q1

REPORT INFORMATION
  Report Type: Spontaneous
  Country: GB (occurrence: None)
  Receive Date: 20140305
  Receipt Date: 20140305
  Transmission Date: 20141002
  Serious: Yes (Hospitalization)
  Sender: FDA-Public Use
  Company Number: 2013GMK007782

PATIENT
  Age: 49 Year
  Sex: Male

DRUGS (4)
  1. MONTELUKAST [Suspect]
     Indication: ASTHMA
     Dosage: 10 MG, OD, ORAL
     Route: 048
     Dates: start: 201302, end: 20131030
  2. FLIXOTIDE [Concomitant]
  3. PREDNISOLONE (PREDNISOLONE) [Concomitant]
  4. SERETIDE (FLUTICASONE PROPIONATE, SALMETEROL XINAFOATE) [Concomitant]

REACTIONS (1)
  - Allergic granulomatous angiitis [None]
